FAERS Safety Report 6900313-5 (Version None)
Quarter: 2010Q3

REPORT INFORMATION
  Report Type: 
  Country: None (occurrence: None)
  Receive Date: 20100803
  Receipt Date: 20100720
  Transmission Date: 20110219
  Serious: Yes (Hospitalization)
  Sender: FDA-Public Use
  Company Number: PHHY2010JP49230

PATIENT
  Sex: Male

DRUGS (11)
  1. SALAGEN [Suspect]
     Indication: DRY MOUTH
     Dosage: 2.5 MG, TID
     Route: 048
     Dates: start: 20080208, end: 20080512
  2. SALAGEN [Suspect]
     Dosage: 5 MG, TID
     Route: 048
     Dates: start: 20080513, end: 20081111
  3. METHOTREXATE [Concomitant]
     Indication: HYPOPHARYNGEAL CANCER
     Dosage: UNK
     Dates: start: 20080101
  4. METHOTREXATE [Concomitant]
     Dosage: 150 MG, PRN
     Dates: start: 20080303
  5. FLUOROURACIL [Concomitant]
     Indication: HYPOPHARYNGEAL CANCER
     Dosage: UNK
     Dates: start: 20071201, end: 20080101
  6. FLUOROURACIL [Concomitant]
     Dosage: 1050 MG, PRN
     Dates: start: 20080303, end: 20080305
  7. AQUPLA [Concomitant]
     Indication: HYPOPHARYNGEAL CANCER
     Dosage: UNK
     Dates: start: 20071201, end: 20080101
  8. AQUPLA [Concomitant]
     Dosage: 140 MG, PRN
     Dates: start: 20080303, end: 20080306
  9. GLICLAZIDE [Concomitant]
     Route: 048
  10. GASTER D [Concomitant]
     Indication: PROPHYLAXIS AGAINST GASTROINTESTINAL ULCER
     Dosage: UNK
     Route: 048
  11. LOXONIN [Concomitant]
     Indication: HYPOPHARYNGEAL CANCER STAGE IV
     Dosage: UNK
     Route: 048

REACTIONS (2)
  - DRUG ERUPTION [None]
  - RASH [None]
